FAERS Safety Report 9919860 (Version 3)
Quarter: 2014Q2

REPORT INFORMATION
  Report Type: Report from Study
  Country: FR (occurrence: FR)
  Receive Date: 20140224
  Receipt Date: 20140618
  Transmission Date: 20141212
  Serious: Yes (Other)
  Sender: FDA-Public Use
  Company Number: FR-CELGENEUS-056-21880-14021552

PATIENT
  Age: 70 Year
  Sex: Female
  Weight: 74 kg

DRUGS (4)
  1. REVLIMID [Suspect]
     Indication: POEMS SYNDROME
     Dosage: 50 MILLIGRAM
     Route: 048
     Dates: start: 20130516, end: 20130703
  2. DEXAMETHASONE [Suspect]
     Indication: POEMS SYNDROME
     Dosage: 40 MILLIGRAM
     Route: 048
     Dates: start: 20130516, end: 20130704
  3. CYMBALTA [Concomitant]
     Indication: ANXIETY
     Route: 065
     Dates: start: 20130711
  4. REVOLADE [Concomitant]
     Indication: PRODUCT USED FOR UNKNOWN INDICATION
     Route: 065
     Dates: start: 20131003

REACTIONS (3)
  - Malignant melanoma in situ [Recovered/Resolved]
  - Basal cell carcinoma [Recovered/Resolved]
  - Squamous cell carcinoma of skin [Recovered/Resolved]
